FAERS Safety Report 6015609-1 (Version None)
Quarter: 2008Q4

REPORT INFORMATION
  Report Type: 
  Country: None (occurrence: None)
  Receive Date: 20081222
  Receipt Date: 20081217
  Transmission Date: 20090506
  Serious: Yes (Other)
  Sender: FDA-Public Use
  Company Number: US-ABBOTT-08P-163-0493420-00

PATIENT
  Sex: Female

DRUGS (3)
  1. ULTANE [Suspect]
     Indication: GENERAL ANAESTHESIA
     Dates: start: 20081210, end: 20081210
  2. ULTANE [Suspect]
     Dates: start: 20081210, end: 20081210
  3. PROPOFOL [Concomitant]
     Indication: GENERAL ANAESTHESIA
     Dates: start: 20081210, end: 20081210

REACTIONS (1)
  - UNWANTED AWARENESS DURING ANAESTHESIA [None]
